FAERS Safety Report 19693948 (Version 1)
Quarter: 2021Q3

REPORT INFORMATION
  Report Type: Spontaneous
  Country: BE (occurrence: BE)
  Receive Date: 20210812
  Receipt Date: 20210812
  Transmission Date: 20211014
  Serious: Yes (Hospitalization, Other)
  Sender: FDA-Public Use
  Company Number: BE-MYLANLABS-2021M1049235

PATIENT
  Age: 83 Year
  Sex: Male

DRUGS (17)
  1. ALLOPURINOL. [Concomitant]
     Active Substance: ALLOPURINOL
     Indication: PROPHYLAXIS
     Dosage: 300 MILLIGRAM, QD
     Route: 048
     Dates: start: 20201221
  2. AZACITIDINE. [Suspect]
     Active Substance: AZACITIDINE
     Indication: MYELODYSPLASTIC SYNDROME
     Dosage: 75 MILLIGRAM/SQ. METER, QW
     Route: 058
     Dates: start: 20201221
  3. ESCITALOPRAM [Concomitant]
     Active Substance: ESCITALOPRAM OXALATE
     Indication: DEPRESSION
     Dosage: 20 MILLIGRAM, QD
     Route: 048
     Dates: start: 20171206
  4. OXYBUTYNINE                        /00538901/ [Concomitant]
     Active Substance: OXYBUTYNIN
     Indication: BLADDER DISORDER
     Dosage: 5 MILLIGRAM, QD
     Route: 048
     Dates: start: 20151014
  5. TRAMADOL. [Concomitant]
     Active Substance: TRAMADOL
     Indication: INTERVERTEBRAL DISC DISORDER
     Dosage: 50 MILLIGRAM
     Route: 048
     Dates: start: 20210122
  6. RIVAROXABAN [Concomitant]
     Active Substance: RIVAROXABAN
     Indication: THROMBOSIS PROPHYLAXIS
     Dosage: 10 MILLIGRAM, QD
     Route: 048
     Dates: start: 20021005
  7. TRAMADOL RETARD [Concomitant]
     Active Substance: TRAMADOL
     Indication: INTERVERTEBRAL DISC DISORDER
     Dosage: 400 MILLIGRAM, QD (400 MILLIGRAM )
     Route: 048
     Dates: start: 20210125
  8. FLUCONAZOLE. [Concomitant]
     Active Substance: FLUCONAZOLE
     Indication: INFECTION PROPHYLAXIS
     Dosage: 200 MILLIGRAM, QD
     Route: 048
     Dates: start: 20200911
  9. ACICLOVIR [Concomitant]
     Active Substance: ACYCLOVIR
     Indication: INFECTION PROPHYLAXIS
     Dosage: 3600 MILLIGRAM, QD (1200 MILLIGRAM)
     Route: 065
     Dates: start: 20200911
  10. PARACETAMOL [Concomitant]
     Active Substance: ACETAMINOPHEN
     Indication: HEADACHE
     Dosage: 1 GRAM
     Route: 048
     Dates: start: 20210121, end: 20210201
  11. OMEPRAZOLE. [Concomitant]
     Active Substance: OMEPRAZOLE
     Indication: SUPPLEMENTATION THERAPY
     Dosage: 1, UNK, QD
     Route: 065
     Dates: start: 20121209
  12. MOXIFLOXACIN. [Concomitant]
     Active Substance: MOXIFLOXACIN
     Indication: C-REACTIVE PROTEIN INCREASED
     Dosage: 400 MILLIGRAM, QD
     Route: 048
     Dates: start: 20210121
  13. PARACETAMOL [Concomitant]
     Active Substance: ACETAMINOPHEN
     Dosage: 16 GRAM, QD (4 GRAM)
     Route: 048
     Dates: start: 20210202
  14. RIVAROXABAN [Concomitant]
     Active Substance: RIVAROXABAN
     Indication: ANTI FACTOR VIII ANTIBODY INCREASED
     Dosage: UNK
  15. VENETOCLAX. [Suspect]
     Active Substance: VENETOCLAX
     Indication: MYELODYSPLASTIC SYNDROME
     Dosage: 2800 MILLIGRAM, Q28D (200 MILLIGRAM)
     Route: 048
     Dates: start: 20201221
  16. TRAZODONE [Concomitant]
     Active Substance: TRAZODONE HYDROCHLORIDE
     Indication: DEPRESSION
     Dosage: 50 MILLIGRAM, QD
     Route: 048
     Dates: start: 2002, end: 20210203
  17. ALIZAPRIDE [Concomitant]
     Active Substance: ALIZAPRIDE
     Indication: PROPHYLAXIS OF NAUSEA AND VOMITING
     Dosage: 450 MILLIEQUIVALENT, QD (150 MILLIEQUIVALENTS)
     Route: 048
     Dates: start: 20201221

REACTIONS (1)
  - General physical health deterioration [Not Recovered/Not Resolved]

NARRATIVE: CASE EVENT DATE: 20210201
